FAERS Safety Report 4525372-9 (Version None)
Quarter: 2004Q4

REPORT INFORMATION
  Report Type: 
  Country: None (occurrence: None)
  Receive Date: 20041116
  Receipt Date: 20040921
  Transmission Date: 20050328
  Serious: No
  Sender: FDA-Public Use
  Company Number: S04-USA-06327-01

PATIENT
  Age: 78 Year
  Sex: Female

DRUGS (6)
  1. NAMENDA [Suspect]
     Indication: MEMORY IMPAIRMENT
     Dosage: 5 MG QD PO
     Route: 048
     Dates: start: 20040916
  2. AVAPRO [Concomitant]
  3. CRESTOR [Concomitant]
  4. COENZYME Q10 [Concomitant]
  5. MULTIVITAMIN [Concomitant]
  6. ANXIETY PILL (NOS) [Concomitant]

REACTIONS (1)
  - NIGHTMARE [None]
